FAERS Safety Report 22273192 (Version 1)
Quarter: 2023Q2

REPORT INFORMATION
  Report Type: Other
  Country: PH (occurrence: None)
  Receive Date: 20230502
  Receipt Date: 20230502
  Transmission Date: 20230722
  Serious: Yes (Other)
  Sender: FDA-Public Use
  Company Number: PH-ROCHE-3278134

PATIENT
  Age: 59 Year
  Sex: Male
  Weight: 53.9 kg

DRUGS (3)
  1. TECENTRIQ [Suspect]
     Active Substance: ATEZOLIZUMAB
     Indication: Hepatocellular carcinoma
     Dosage: 1200MG X 1 VIAL
     Route: 042
  2. AVASTIN [Suspect]
     Active Substance: BEVACIZUMAB
     Indication: Hepatocellular carcinoma
     Route: 042
  3. AVASTIN [Suspect]
     Active Substance: BEVACIZUMAB
     Dosage: 100MG X 1 VIAL
     Route: 042

REACTIONS (3)
  - Tonsillitis [Recovering/Resolving]
  - Infection [Recovered/Resolved]
  - Neoplasm progression [Unknown]
